FAERS Safety Report 8978252 (Version 2)
Quarter: 2013Q1

REPORT INFORMATION
  Report Type: Spontaneous
  Country: JP (occurrence: JP)
  Receive Date: 20121221
  Receipt Date: 20130129
  Transmission Date: 20140127
  Serious: Yes (Hospitalization)
  Sender: FDA-Public Use
  Company Number: JP-009507513-1212JPN006579

PATIENT
  Age: 54 Year
  Sex: Female
  Weight: 59 kg

DRUGS (17)
  1. DIOVAN [Concomitant]
     Dosage: 40 MG, QD
     Route: 048
     Dates: start: 20120928
  2. URSO [Concomitant]
     Indication: HYPERTENSION
     Dosage: 200 MG, TID
     Route: 048
     Dates: start: 20120726, end: 20121012
  3. GLYCYRON [Concomitant]
     Indication: CHRONIC HEPATITIS C
     Dosage: 2 DOSAGE FORM,TID
     Route: 048
     Dates: start: 20120726, end: 20121012
  4. NORVASC [Concomitant]
     Indication: HYPERTENSION
     Dosage: 5 MG, QD
     Route: 048
     Dates: start: 20120910
  5. ISOTONIC SODIUM CHLORIDE SOLUTION PL FUSO [Concomitant]
     Dosage: 100 ML, QD
     Route: 041
     Dates: start: 20121019, end: 20121025
  6. ISOTONIC SODIUM CHLORIDE SOLUTION PL FUSO [Concomitant]
     Dosage: 100ML,QD
     Route: 041
     Dates: start: 20121031, end: 20121104
  7. FAMOTIDINE D [Concomitant]
     Indication: ABDOMINAL DISCOMFORT
     Dosage: 10 MG, BID
     Route: 048
     Dates: start: 20121019, end: 20121026
  8. REBAMIPIDE [Concomitant]
     Indication: PROPHYLAXIS
     Dosage: 100 MG, QD
     Route: 048
     Dates: start: 20121031
  9. SOLDEM 3A [Concomitant]
     Indication: DEHYDRATION
     Dosage: 500 ML, QD
     Route: 048
     Dates: start: 20121101, end: 20121104
  10. KANAMYCIN [Concomitant]
     Dosage: 500 MG, TID
     Route: 048
     Dates: start: 20121102, end: 20121107
  11. HIRUDOID [Concomitant]
     Indication: XERODERMA
     Dosage: SINGLE USE, FORMULATION:LOT
     Dates: start: 20121109
  12. REBETOL [Suspect]
     Indication: CHRONIC HEPATITIS C
     Dosage: 800 MG, BID
     Route: 048
     Dates: start: 20121013, end: 20121019
  13. REBETOL [Suspect]
     Dosage: 800 MG, BID
     Route: 048
     Dates: start: 20121022
  14. FERON [Suspect]
     Indication: CHRONIC HEPATITIS C
     Dosage: 6 MILLION-BILLION UNIT, QD
     Route: 040
     Dates: start: 20121013, end: 20121019
  15. FERON [Suspect]
     Dosage: 6 MILLION-BILLION UNIT,QD
     Route: 040
     Dates: start: 20121026, end: 20121101
  16. FERON [Suspect]
     Dosage: 6 MILLION-BILLION UNIT, QW
     Route: 040
     Dates: start: 20121108
  17. DIOVAN [Concomitant]
     Indication: HYPERTENSION
     Dosage: 80 MG, QD
     Route: 048
     Dates: start: 20120726

REACTIONS (6)
  - Sudden hearing loss [Recovered/Resolved]
  - Sepsis [Recovered/Resolved]
  - Pyrexia [Recovered/Resolved]
  - Nausea [Recovered/Resolved]
  - Insomnia [Recovered/Resolved]
  - Rash [Recovered/Resolved]
